FAERS Safety Report 18995373 (Version 1)
Quarter: 2021Q1

REPORT INFORMATION
  Report Type: Spontaneous
  Country: US (occurrence: US)
  Receive Date: 20210311
  Receipt Date: 20210311
  Transmission Date: 20210420
  Serious: No
  Sender: FDA-Public Use
  Company Number: US-DECIPHERA PHARMACEUTICALS LLC-2021US000046

PATIENT
  Sex: Male

DRUGS (1)
  1. QINLOCK [Suspect]
     Active Substance: RIPRETINIB
     Indication: BENIGN NEOPLASM
     Dosage: 150 MILLIGRAM, QD
     Route: 048
     Dates: start: 20201125, end: 202012

REACTIONS (1)
  - Adverse event [Unknown]
